FAERS Safety Report 19035941 (Version 1)
Quarter: 2021Q1

REPORT INFORMATION
  Report Type: Spontaneous
  Country: US (occurrence: US)
  Receive Date: 20210321
  Receipt Date: 20210321
  Transmission Date: 20210420
  Serious: Yes (Hospitalization)
  Sender: FDA-Public Use
  Company Number: US-TEVA-2021-US-1891395

PATIENT
  Age: 47 Year

DRUGS (4)
  1. NEFAZODONE [Suspect]
     Active Substance: NEFAZODONE
     Dosage: 50 MILLIGRAM DAILY;
     Route: 065
  2. NEFAZODONE [Suspect]
     Active Substance: NEFAZODONE
     Indication: POST-TRAUMATIC STRESS DISORDER
     Dosage: MEDICATION FOR 21 YEARS
     Route: 065
  3. NEFAZODONE [Suspect]
     Active Substance: NEFAZODONE
     Indication: ANXIETY
     Dosage: 300 MILLIGRAM DAILY;
     Route: 065
  4. NEFAZODONE [Suspect]
     Active Substance: NEFAZODONE
     Dosage: 200 MILLIGRAM DAILY;
     Route: 065

REACTIONS (7)
  - Withdrawal syndrome [Recovered/Resolved]
  - Fear [Recovered/Resolved]
  - Muscle spasms [Unknown]
  - Musculoskeletal stiffness [Recovered/Resolved]
  - Blood potassium decreased [Recovered/Resolved]
  - Off label use [Unknown]
  - Blood sodium decreased [Not Recovered/Not Resolved]
